FAERS Safety Report 7967591 (Version 3)
Quarter: 2012Q4

REPORT INFORMATION
  Report Type: 
  Country: US (occurrence: US)
  Receive Date: 20110531
  Receipt Date: 20120921
  Transmission Date: 20130627
  Serious: Yes (Hospitalization)
  Sender: FDA-Public Use
  Company Number: US-US-EMD SERONO, INC.-7061725

PATIENT
  Age: 34 None
  Sex: Female
  Weight: 54 kg

DRUGS (7)
  1. REBIF [Suspect]
     Indication: MULTIPLE SCLEROSIS
     Route: 058
     Dates: start: 20110113
  2. WARFARIN [Concomitant]
     Indication: PULMONARY EMBOLISM
  3. WARFARIN [Concomitant]
     Indication: DEEP VEIN THROMBOSIS
  4. LOVENOX [Concomitant]
     Indication: PULMONARY EMBOLISM
  5. LOVENOX [Concomitant]
     Indication: DEEP VEIN THROMBOSIS
  6. LASIX [Concomitant]
     Indication: OEDEMA PERIPHERAL
  7. TYLENOL [Concomitant]
     Indication: PREMEDICATION

REACTIONS (3)
  - Pulmonary embolism [Recovering/Resolving]
  - Peripheral embolism [Recovering/Resolving]
  - International normalised ratio decreased [Recovering/Resolving]
